FAERS Safety Report 10899093 (Version 1)
Quarter: 2015Q1

REPORT INFORMATION
  Report Type: Report from Study
  Country: KR (occurrence: KR)
  Receive Date: 20150309
  Receipt Date: 20150309
  Transmission Date: 20150721
  Serious: Yes (Death)
  Sender: FDA-Public Use
  Company Number: KR-SA-2013SA119752

PATIENT

DRUGS (3)
  1. OXALIPLATIN. [Suspect]
     Active Substance: OXALIPLATIN
     Indication: BILIARY NEOPLASM
     Dosage: DAY 1, 2-HR INTRAVENOUS INFUSION
     Route: 042
  2. FLUOROURACIL. [Suspect]
     Active Substance: FLUOROURACIL
     Indication: BILIARY NEOPLASM
     Route: 042
  3. FOLINIC ACID [Suspect]
     Active Substance: LEUCOVORIN
     Indication: BILIARY NEOPLASM
     Dosage: DAY 1,2, EVERY 2 WEEKS
     Route: 040

REACTIONS (2)
  - Neutropenic infection [Fatal]
  - Biliary tract infection [Fatal]
